FAERS Safety Report 6795192-3 (Version None)
Quarter: 2010Q2

REPORT INFORMATION
  Report Type: 
  Country: None (occurrence: None)
  Receive Date: 20100625
  Receipt Date: 20100616
  Transmission Date: 20101027
  Serious: Yes (Hospitalization, Other)
  Sender: FDA-Public Use
  Company Number: JP-ROCHE-708939

PATIENT
  Sex: Male
  Weight: 55 kg

DRUGS (16)
  1. ACTEMRA [Suspect]
     Indication: RHEUMATOID ARTHRITIS
     Route: 042
     Dates: start: 20080813, end: 20080813
  2. ACTEMRA [Suspect]
     Route: 042
     Dates: start: 20080910, end: 20080910
  3. ACTEMRA [Suspect]
     Route: 042
     Dates: start: 20081010, end: 20081010
  4. ACTEMRA [Suspect]
     Route: 042
     Dates: start: 20081113, end: 20081113
  5. ACTEMRA [Suspect]
     Route: 042
     Dates: start: 20081211, end: 20081211
  6. ACTEMRA [Suspect]
     Route: 042
     Dates: start: 20090108, end: 20090108
  7. ACTEMRA [Suspect]
     Route: 042
     Dates: start: 20090205
  8. RHEUMATREX [Concomitant]
     Route: 048
  9. ISCOTIN [Concomitant]
     Dosage: FORM: PERORAL AGENT
     Route: 048
  10. PREDONINE [Concomitant]
     Route: 048
  11. PREDONINE [Concomitant]
     Route: 048
     Dates: start: 20090108
  12. LOXONIN [Concomitant]
     Dosage: FORM: PERORAL AGENT
     Route: 048
  13. CYTOTEC [Concomitant]
     Route: 048
  14. TAKEPRON [Concomitant]
     Dosage: PERORAL AGENT
     Route: 048
  15. PYDOXAL [Concomitant]
     Route: 048
  16. FOLIAMIN [Concomitant]
     Dosage: FORM: PER ORAL AGENT
     Route: 048

REACTIONS (3)
  - CELLULITIS [None]
  - DEEP VEIN THROMBOSIS [None]
  - RHEUMATOID ARTHRITIS [None]
